FAERS Safety Report 8409157-9 (Version None)
Quarter: 2012Q2

REPORT INFORMATION
  Report Type: 
  Country: None (occurrence: None)
  Receive Date: 20120604
  Receipt Date: 20120604
  Transmission Date: 20120825
  Serious: Yes (Other)
  Sender: FDA-Public Use
  Company Number: SE-BAYER-2012-054773

PATIENT
  Sex: Female

DRUGS (1)
  1. MIRENA [Suspect]
     Dosage: 20 ?G/D, CONT
     Route: 015
     Dates: end: 20120530

REACTIONS (3)
  - VAGINAL HAEMORRHAGE [None]
  - ABDOMINAL PAIN [None]
  - INFECTION [None]
